FAERS Safety Report 4774413-2 (Version None)
Quarter: 2005Q3

REPORT INFORMATION
  Report Type: 
  Country: None (occurrence: None)
  Receive Date: 20050919
  Receipt Date: 20050919
  Transmission Date: 20060218
  Serious: Yes (Other)
  Sender: FDA-Public Use
  Company Number: None

PATIENT
  Age: 53 Year
  Sex: Female
  Weight: 66 kg

DRUGS (1)
  1. VANCOMYCIN [Suspect]
     Indication: DIABETIC FOOT INFECTION
     Dosage: 850 MG IV DAILY
     Route: 042
     Dates: start: 20050831, end: 20050915

REACTIONS (2)
  - GENERALISED OEDEMA [None]
  - RASH [None]
